FAERS Safety Report 9716819 (Version 1)
Quarter: 2013Q4

REPORT INFORMATION
  Report Type: Spontaneous
  Country: DE (occurrence: DE)
  Receive Date: 20131127
  Receipt Date: 20131127
  Transmission Date: 20140711
  Serious: Yes (Other)
  Sender: FDA-Public Use
  Company Number: DE-ABBVIE-13P-062-1173222-00

PATIENT
  Age: 47 Year
  Sex: Female

DRUGS (9)
  1. ERGENYL [Suspect]
     Indication: PRODUCT USED FOR UNKNOWN INDICATION
     Dosage: 1200 MG DAILY
     Route: 048
     Dates: start: 20130411, end: 20130725
  2. RISPERIDONE [Suspect]
     Indication: PRODUCT USED FOR UNKNOWN INDICATION
     Dosage: 6 MG DAILY
     Route: 048
     Dates: start: 20130313, end: 20130429
  3. RISPERIDONE [Suspect]
     Dosage: 7 MG DAILY
     Route: 048
     Dates: start: 20130430, end: 20130716
  4. RISPERIDONE [Suspect]
     Dosage: 1 MG DAILY
     Route: 048
     Dates: start: 20130717, end: 20130808
  5. QUETIAPINE FUMARATE [Suspect]
     Indication: PRODUCT USED FOR UNKNOWN INDICATION
     Dosage: 150 MG DAILY
     Route: 048
     Dates: start: 20130612, end: 20130626
  6. QUETIAPINE FUMARATE [Suspect]
     Dosage: 400 MG DAILY
     Route: 048
     Dates: start: 20130627, end: 20130813
  7. QUETIAPINE FUMARATE [Suspect]
     Dosage: 50 MG DAILY
     Route: 048
     Dates: start: 20130814, end: 20130827
  8. DIAZEPAM [Concomitant]
     Indication: PRODUCT USED FOR UNKNOWN INDICATION
     Dates: start: 20130616, end: 20130806
  9. MIRTAZAPINE [Concomitant]
     Indication: PRODUCT USED FOR UNKNOWN INDICATION
     Dates: start: 20130710

REACTIONS (3)
  - Blood prolactin increased [Recovered/Resolved]
  - Galactorrhoea [Recovered/Resolved]
  - Amenorrhoea [Unknown]
